FAERS Safety Report 4725441-4 (Version None)
Quarter: 2005Q3

REPORT INFORMATION
  Report Type: 
  Country: None (occurrence: None)
  Receive Date: 20050721
  Receipt Date: 20050531
  Transmission Date: 20060218
  Serious: No
  Sender: FDA-Public Use
  Company Number: 2005SP001112

PATIENT
  Age: 47 Year
  Sex: Female
  Weight: 88.4514 kg

DRUGS (2)
  1. LUNESTA [Suspect]
     Dosage: HS;ORAL
     Route: 048
     Dates: start: 20050527
  2. ZANTAC [Concomitant]

REACTIONS (1)
  - DYSGEUSIA [None]
